FAERS Safety Report 10225535 (Version 2)
Quarter: 2014Q2

REPORT INFORMATION
  Report Type: Spontaneous
  Country: US (occurrence: US)
  Receive Date: 20140609
  Receipt Date: 20140609
  Transmission Date: 20141212
  Serious: No
  Sender: FDA-Public Use
  Company Number: US-ASTELLAS-2014US000457

PATIENT
  Sex: Female

DRUGS (3)
  1. PROGRAF [Suspect]
     Indication: RENAL TRANSPLANT
     Dosage: LESS THEN 0.5 MG  UNKNOWN/D
     Route: 042
     Dates: start: 201208
  2. PROGRAF [Suspect]
     Dosage: 0.25 MG, EVERY 3 DAYS
     Route: 042
  3. ANTIINFECTIVES [Suspect]
     Indication: PRODUCT USED FOR UNKNOWN INDICATION
     Route: 065

REACTIONS (2)
  - Drug interaction [Unknown]
  - Incorrect product storage [Unknown]
